FAERS Safety Report 25494672 (Version 1)
Quarter: 2025Q2

REPORT INFORMATION
  Report Type: Report from Study
  Country: US (occurrence: US)
  Receive Date: 20250630
  Receipt Date: 20250630
  Transmission Date: 20250716
  Serious: Yes (Hospitalization)
  Sender: EMD SERONO INC
  Company Number: US-Merck Healthcare KGaA-2025032574

PATIENT
  Sex: Female

DRUGS (2)
  1. MAVENCLAD [Suspect]
     Active Substance: CLADRIBINE
     Indication: Multiple sclerosis
  2. MAVENCLAD [Suspect]
     Active Substance: CLADRIBINE
     Dates: start: 20250306, end: 20250309

REACTIONS (6)
  - Colitis [Unknown]
  - Multiple sclerosis relapse [Unknown]
  - Stress [Unknown]
  - Fall [Unknown]
  - Head injury [Unknown]
  - Swelling [Unknown]
